FAERS Safety Report 23428556 (Version 4)
Quarter: 2024Q2

REPORT INFORMATION
  Report Type: Report from Study
  Country: MX (occurrence: MX)
  Receive Date: 20240122
  Receipt Date: 20240418
  Transmission Date: 20240716
  Serious: Yes (Death, Hospitalization, Other)
  Sender: FDA-Public Use
  Company Number: MX-TAKEDA-2024TUS005138

PATIENT
  Age: 53 Year
  Sex: Male
  Weight: 69 kg

DRUGS (5)
  1. PONATINIB [Suspect]
     Active Substance: PONATINIB
     Indication: Chronic myeloid leukaemia
     Dosage: 45 MILLIGRAM, QD
     Route: 048
     Dates: start: 20231123
  2. PONATINIB [Suspect]
     Active Substance: PONATINIB
     Dosage: UNK UNK, QD
     Route: 048
  3. PONATINIB [Suspect]
     Active Substance: PONATINIB
     Dosage: 45 MILLIGRAM, QD
     Route: 048
     Dates: end: 20240106
  4. PONATINIB [Suspect]
     Active Substance: PONATINIB
     Dosage: 45 MILLIGRAM
     Route: 048
     Dates: start: 20240216, end: 20240412
  5. VENETOCLAX [Suspect]
     Active Substance: VENETOCLAX
     Indication: Chronic myeloid leukaemia
     Dosage: UNK
     Route: 065
     Dates: start: 20231123

REACTIONS (7)
  - Death [Fatal]
  - COVID-19 [Recovered/Resolved]
  - Cardiac disorder [Recovered/Resolved]
  - Chronic myeloid leukaemia recurrent [Recovered/Resolved]
  - Pericardial effusion [Recovered/Resolved]
  - Diarrhoea [Recovering/Resolving]
  - Incorrect dose administered [Not Recovered/Not Resolved]

NARRATIVE: CASE EVENT DATE: 20231101
